FAERS Safety Report 8092318-9 (Version None)
Quarter: 2012Q1

REPORT INFORMATION
  Report Type: 
  Country: None (occurrence: None)
  Receive Date: 20120130
  Receipt Date: 20120130
  Transmission Date: 20120608
  Serious: No
  Sender: FDA-Public Use
  Company Number: None

PATIENT
  Sex: Male
  Weight: 94 kg

DRUGS (1)
  1. INTRON A [Suspect]
     Dosage: 43 MU
     Dates: start: 20110123

REACTIONS (1)
  - NEUTROPENIA [None]
